FAERS Safety Report 9561794 (Version 1)
Quarter: 2013Q3

REPORT INFORMATION
  Report Type: Spontaneous
  Country: US (occurrence: None)
  Receive Date: 20130830
  Receipt Date: 20130830
  Transmission Date: 20140515
  Serious: Yes (Hospitalization)
  Sender: FDA-Public Use
  Company Number: AMAG201300071

PATIENT
  Age: 66 Year
  Sex: Female
  Weight: 78.9 kg

DRUGS (8)
  1. FERAHEME (FERUMOXYTOL) INJECTION, 510MG [Suspect]
     Indication: BLOOD IRON DECREASED
     Dosage: UNK, SINGLE , INTRAVENOUS
     Route: 042
     Dates: start: 20130424, end: 20130424
  2. ALBUTEROL (SALBUTAMOL SULFATE) [Concomitant]
  3. LISINOPRIL (LISINOPRIL) [Concomitant]
  4. PREMARIN (ESTROGENS CONJUGATED) [Concomitant]
  5. SERTRALINE (SERTRALINE HYDROCHLORIDE) [Concomitant]
  6. TRAZODONE (TRAZODONE HYDROCHLORIDE) [Concomitant]
  7. URSODIOL (URSODIOL) [Concomitant]
  8. AMLODIPINE (AMLODIPINE MESILATE) [Concomitant]

REACTIONS (7)
  - Anaphylactic reaction [None]
  - Dyspnoea [None]
  - Hypotension [None]
  - Dizziness [None]
  - Back pain [None]
  - Cold sweat [None]
  - Oxygen saturation decreased [None]
